FAERS Safety Report 6293559-3 (Version None)
Quarter: 2009Q3

REPORT INFORMATION
  Report Type: 
  Country: None (occurrence: None)
  Receive Date: 20090803
  Receipt Date: 20090730
  Transmission Date: 20100115
  Serious: Yes (Disabling)
  Sender: FDA-Public Use
  Company Number: DE-BRISTOL-MYERS SQUIBB COMPANY-14721849

PATIENT
  Sex: Male

DRUGS (1)
  1. ABILIFY [Suspect]

REACTIONS (7)
  - CONSTIPATION [None]
  - FATIGUE [None]
  - HAEMORRHOIDS [None]
  - SEMEN VISCOSITY ABNORMAL [None]
  - SLEEP DISORDER [None]
  - THROMBOSIS [None]
  - VISUAL ACUITY REDUCED [None]
